FAERS Safety Report 8374592-4 (Version None)
Quarter: 2012Q2

REPORT INFORMATION
  Report Type: 
  Country: None (occurrence: None)
  Receive Date: 20120521
  Receipt Date: 20120517
  Transmission Date: 20120825
  Serious: No
  Sender: FDA-Public Use
  Company Number: US-TEVA-338821USA

PATIENT
  Sex: Female

DRUGS (2)
  1. THE 2 PILL ONE THAT IS LIKE PLAN B [Suspect]
     Route: 048
  2. PLAN B ONE-STEP [Suspect]
     Indication: POST COITAL CONTRACEPTION
     Dosage: 1.5 MILLIGRAM;
     Route: 048
     Dates: start: 20120507, end: 20120507

REACTIONS (2)
  - PELVIC PAIN [None]
  - BREAST PAIN [None]
